FAERS Safety Report 13102785 (Version 3)
Quarter: 2017Q1

REPORT INFORMATION
  Report Type: Report from Study
  Country: US (occurrence: US)
  Receive Date: 20170110
  Receipt Date: 20170116
  Transmission Date: 20170428
  Serious: Yes (Other)
  Sender: FDA-Public Use
  Company Number: US-BIOGEN-2016BI00326387

PATIENT
  Sex: Female

DRUGS (1)
  1. TECFIDERA [Suspect]
     Active Substance: DIMETHYL FUMARATE
     Indication: MULTIPLE SCLEROSIS
     Route: 048
     Dates: start: 201610

REACTIONS (6)
  - Dehydration [Unknown]
  - Basedow^s disease [Not Recovered/Not Resolved]
  - Blood potassium decreased [Unknown]
  - Bipolar I disorder [Not Recovered/Not Resolved]
  - Central nervous system lesion [Unknown]
  - Gastrointestinal disorder [Not Recovered/Not Resolved]
